FAERS Safety Report 23980122 (Version 1)
Quarter: 2024Q2

REPORT INFORMATION
  Report Type: Report from Study
  Country: US (occurrence: US)
  Receive Date: 20240617
  Receipt Date: 20240617
  Transmission Date: 20240715
  Serious: Yes (Other)
  Sender: FDA-Public Use
  Company Number: US-JNJFOC-20240624896

PATIENT

DRUGS (1)
  1. SPRAVATO [Suspect]
     Active Substance: ESKETAMINE
     Indication: Major depression
     Dosage: THE PATIENT WAS ON SPRAVATO FOR 9 MONTHS
     Dates: start: 2022

REACTIONS (1)
  - Major depression [Unknown]

NARRATIVE: CASE EVENT DATE: 20240101
